FAERS Safety Report 24554077 (Version 2)
Quarter: 2025Q3

REPORT INFORMATION
  Report Type: Spontaneous
  Country: US (occurrence: US)
  Receive Date: 20241028
  Receipt Date: 20250809
  Transmission Date: 20251021
  Serious: Yes (Other)
  Sender: ALEXION PHARMACEUTICALS
  Company Number: US-ASTRAZENECA-202409USA010498US

PATIENT
  Sex: Male

DRUGS (2)
  1. CRESTOR [Suspect]
     Active Substance: ROSUVASTATIN CALCIUM
     Indication: Hyperlipidaemia
     Dosage: 20 UNK, QD
  2. VYNDAMAX [Suspect]
     Active Substance: TAFAMIDIS

REACTIONS (15)
  - Cardiac amyloidosis [Unknown]
  - Pericarditis [Unknown]
  - Catheterisation cardiac abnormal [Unknown]
  - Left ventricular hypertrophy [Unknown]
  - Hypotension [Unknown]
  - Nausea [Unknown]
  - Abdominal discomfort [Unknown]
  - Diarrhoea [Unknown]
  - Dyspnoea exertional [Unknown]
  - Supraventricular tachycardia [Unknown]
  - Hypercholesterolaemia [Unknown]
  - Contusion [Unknown]
  - Haemorrhage [Unknown]
  - Dyspnoea [Unknown]
  - Fatigue [Unknown]
